FAERS Safety Report 15507953 (Version 1)
Quarter: 2018Q4

REPORT INFORMATION
  Report Type: Spontaneous
  Country: TR (occurrence: TR)
  Receive Date: 20181016
  Receipt Date: 20181016
  Transmission Date: 20190205
  Serious: Yes (Other)
  Sender: FDA-Public Use
  Company Number: TR-BAYER-2018-189735

PATIENT
  Age: 84 Year
  Sex: Male

DRUGS (2)
  1. ACETYLSALICYLIC ACID (} 100 MG) [Suspect]
     Active Substance: ASPIRIN
     Dosage: UNK
  2. HEPARIN [Interacting]
     Active Substance: HEPARIN SODIUM
     Dosage: UNK

REACTIONS (5)
  - Labelled drug-drug interaction medication error [None]
  - Vomiting [None]
  - Altered state of consciousness [None]
  - Vertigo [None]
  - Cerebral haemorrhage [None]
